FAERS Safety Report 16842807 (Version 1)
Quarter: 2019Q3

REPORT INFORMATION
  Report Type: Report from Study
  Country: None (occurrence: US)
  Receive Date: 20190924
  Receipt Date: 20190924
  Transmission Date: 20191005
  Serious: Yes (Hospitalization, Other)
  Sender: FDA-Public Use
  Company Number: US-ABBVIE-19K-163-2933485-00

PATIENT
  Age: 76 Year
  Sex: Female

DRUGS (1)
  1. HUMIRA [Suspect]
     Active Substance: ADALIMUMAB
     Indication: PSORIATIC ARTHROPATHY
     Route: 058
     Dates: start: 20190306, end: 2019

REACTIONS (9)
  - Pain [Recovering/Resolving]
  - Loss of personal independence in daily activities [Unknown]
  - Mobility decreased [Unknown]
  - Loss of consciousness [Recovered/Resolved]
  - Cervical vertebral fracture [Unknown]
  - Urinary tract infection [Unknown]
  - Impaired self-care [Unknown]
  - Musculoskeletal stiffness [Recovering/Resolving]
  - Fall [Unknown]

NARRATIVE: CASE EVENT DATE: 2019
